FAERS Safety Report 6044174-8 (Version None)
Quarter: 2009Q1

REPORT INFORMATION
  Report Type: 
  Country: None (occurrence: None)
  Receive Date: 20090120
  Receipt Date: 20090112
  Transmission Date: 20090719
  Serious: Yes (Other)
  Sender: FDA-Public Use
  Company Number: US-AVENTIS-200817988US

PATIENT
  Sex: Female

DRUGS (5)
  1. LANTUS [Suspect]
     Route: 058
     Dates: start: 20080101
  2. METFORMIN HCL [Concomitant]
     Dosage: DOSE: UNK
  3. IBUPROFEN [Concomitant]
     Dosage: DOSE: UNK
  4. TYLENOL (CAPLET) [Concomitant]
     Dosage: DOSE: UNK
  5. AVANDIA [Concomitant]
     Dosage: DOSE: UNK
     Dates: end: 20081101

REACTIONS (2)
  - DYSKINESIA [None]
  - HYPOGLYCAEMIC UNCONSCIOUSNESS [None]
